FAERS Safety Report 9206461 (Version 2)
Quarter: 2013Q2

REPORT INFORMATION
  Report Type: Spontaneous
  Country: US (occurrence: None)
  Receive Date: 20120731
  Receipt Date: 20121130
  Transmission Date: 20140414
  Serious: Yes (Hospitalization, Other)
  Sender: FDA-Public Use
  Company Number: US201204007178

PATIENT
  Age: 40 Year
  Sex: Male

DRUGS (5)
  1. BYETTA [Suspect]
     Route: 058
     Dates: end: 20090602
  2. LIPITOR (ATORVASTATIN CALCIUM) [Concomitant]
  3. GLYBURIDE/METFORMIN (GLIBENCLAMIDE, METFORMIN HYDROCHLORIDE) [Concomitant]
  4. LOTREL (AMLODIPINE BESILATE, BENAZEPRIL HYDROCHLORIDE) [Concomitant]
  5. CENTRUM [Concomitant]

REACTIONS (1)
  - Pancreatitis acute [None]
